FAERS Safety Report 7821414-3 (Version None)
Quarter: 2011Q4

REPORT INFORMATION
  Report Type: 
  Country: None (occurrence: None)
  Receive Date: 20111018
  Receipt Date: 20111011
  Transmission Date: 20120403
  Serious: Yes (Hospitalization, Other)
  Sender: FDA-Public Use
  Company Number: US-ACTELION-A-US2011-45744

PATIENT

DRUGS (5)
  1. ASPIRIN [Concomitant]
  2. TRACLEER [Suspect]
     Indication: PULMONARY ARTERIAL HYPERTENSION
     Dosage: 15.625 MG, BID
     Route: 048
     Dates: start: 20101011
  3. LASIX [Concomitant]
  4. REVATIO [Concomitant]
  5. TRACLEER [Suspect]
     Dosage: 15.625 MG, QD
     Route: 048
     Dates: start: 20101010, end: 20101109

REACTIONS (8)
  - OXYGEN CONSUMPTION INCREASED [None]
  - PARAINFLUENZAE VIRUS INFECTION [None]
  - CROUP INFECTIOUS [None]
  - DRY SKIN [None]
  - USE OF ACCESSORY RESPIRATORY MUSCLES [None]
  - COUGH [None]
  - DYSPNOEA [None]
  - PULMONARY CONGESTION [None]
